FAERS Safety Report 7217209-4 (Version None)
Quarter: 2011Q1

REPORT INFORMATION
  Report Type: 
  Country: None (occurrence: None)
  Receive Date: 20110110
  Receipt Date: 20101230
  Transmission Date: 20110831
  Serious: Yes (Life-Threatening, Other)
  Sender: FDA-Public Use
  Company Number: FR-JNJFOC-20101203689

PATIENT
  Age: 39 Year
  Sex: Male

DRUGS (4)
  1. REMICADE [Suspect]
     Indication: CROHN'S DISEASE
     Route: 042
  2. OROCAL D3 [Concomitant]
  3. DEDROGYL [Concomitant]
  4. ENTOCORT EC [Concomitant]

REACTIONS (2)
  - THYROID CANCER [None]
  - NODULE [None]
